FAERS Safety Report 10713775 (Version 5)
Quarter: 2015Q1

REPORT INFORMATION
  Report Type: Spontaneous
  Country: US (occurrence: US)
  Receive Date: 20150115
  Receipt Date: 20150309
  Transmission Date: 20150721
  Serious: Yes (Hospitalization)
  Sender: FDA-Public Use
  Company Number: US-PFIZER INC-2015016610

PATIENT
  Age: 65 Year
  Sex: Female
  Weight: 54 kg

DRUGS (9)
  1. ASPIRIN. [Concomitant]
     Active Substance: ASPIRIN
     Dosage: LOW DOSE, 1 DOSAGE FORM AT BEDTIME
  2. HYDROCODONE BITARTRATE/PARACETAMOL [Concomitant]
     Dosage: HYDROCODONE BITARTRATE 5MG /PARACETAMOL 325MG AS NEEDED USUALLY 1 TABLET AT BEDTIME
  3. KLOR-CON M10 [Concomitant]
     Active Substance: POTASSIUM CHLORIDE
     Indication: APPETITE DISORDER
     Dosage: ONE TABLET ONCE DAILY
  4. TOPIRAMATE. [Concomitant]
     Active Substance: TOPIRAMATE
     Indication: CLUSTER HEADACHE
     Dosage: 50 MG, ONE IN MORNING AND TWO IN EVENING
  5. CELECOXIB. [Suspect]
     Active Substance: CELECOXIB
     Indication: ARTHRITIS
     Dosage: 200 MG, 1X/DAY
     Route: 048
     Dates: start: 2014, end: 20150113
  6. ATORVASTATIN [Concomitant]
     Active Substance: ATORVASTATIN
     Indication: BLOOD CHOLESTEROL INCREASED
     Dosage: 10-20MG (HALF TO ONE TABLET) ONCE DAILY
  7. AMITRIPTYLINE [Concomitant]
     Active Substance: AMITRIPTYLINE
     Indication: CLUSTER HEADACHE
     Dosage: 25MG ONCE DAILY AT BED TIME
  8. ZOLPIDEM [Concomitant]
     Active Substance: ZOLPIDEM\ZOLPIDEM TARTRATE
     Dosage: 6.25MG ONCE A WEEK OR OTHER WEEK
  9. BENAZEPRIL HYDROCHLORIDE/HYDROCHLOROTHIAZIDE [Concomitant]
     Indication: HYPERTENSION
     Dosage: BENAZEPRIL HYDROCHLORIDE 10 MG/HYDROCHLOROTHIAZIDE12.5MG AT HALF TO ONE TABLET ONCE DAILY

REACTIONS (8)
  - Erythema [Recovered/Resolved]
  - Abdominal pain upper [Recovered/Resolved]
  - Walking aid user [Not Recovered/Not Resolved]
  - Hypersensitivity [Recovered/Resolved]
  - Stomatitis [Recovered/Resolved]
  - Back pain [Recovered/Resolved]
  - Pain [Recovered/Resolved]
  - Drug ineffective [Unknown]
